FAERS Safety Report 25629695 (Version 1)
Quarter: 2025Q3

REPORT INFORMATION
  Report Type: Spontaneous
  Country: SA (occurrence: SA)
  Receive Date: 20250731
  Receipt Date: 20250731
  Transmission Date: 20251020
  Serious: Yes (Life-Threatening)
  Sender: BIOCODEX
  Company Number: SA-BIOCODEX2-2025001191

PATIENT

DRUGS (1)
  1. STIRIPENTOL [Suspect]
     Active Substance: STIRIPENTOL
     Indication: Severe myoclonic epilepsy of infancy
     Dosage: 500 MG BID
     Route: 065

REACTIONS (1)
  - Drug ineffective [Unknown]
